FAERS Safety Report 7019277-1 (Version None)
Quarter: 2010Q3

REPORT INFORMATION
  Report Type: 
  Country: None (occurrence: None)
  Receive Date: 20100923
  Receipt Date: 20100908
  Transmission Date: 20110219
  Serious: Yes (Other)
  Sender: FDA-Public Use
  Company Number: US-ACCORD-006118

PATIENT
  Age: 5 Year
  Sex: Male

DRUGS (3)
  1. MYCOPHENOLATE MOFETIL [Suspect]
     Indication: PRODUCT USED FOR UNKNOWN INDICATION
  2. TACROLIMUS [Suspect]
     Indication: PRODUCT USED FOR UNKNOWN INDICATION
  3. IMMUNE GLOBULIN NOS [Concomitant]

REACTIONS (4)
  - DYSPLASIA [None]
  - HAIR DISORDER [None]
  - INFECTION IN AN IMMUNOCOMPROMISED HOST [None]
  - VIRAL SKIN INFECTION [None]
